FAERS Safety Report 4364328-6 (Version None)
Quarter: 2004Q2

REPORT INFORMATION
  Report Type: 
  Country: None (occurrence: None)
  Receive Date: 20040525
  Receipt Date: 20030916
  Transmission Date: 20050107
  Serious: No
  Sender: FDA-Public Use
  Company Number: US-BRISTOL-MYERS SQUIBB COMPANY-12386496

PATIENT
  Age: 43 Year
  Sex: Male

DRUGS (1)
  1. CYTOXAN [Suspect]
     Indication: CARCINOMA
     Dosage: TOTAL CYCLES-^POSSIBLY 8^
     Dates: start: 20030709, end: 20030709

REACTIONS (1)
  - PLATELET COUNT DECREASED [None]
